FAERS Safety Report 6131809-4 (Version None)
Quarter: 2009Q1

REPORT INFORMATION
  Report Type: 
  Country: None (occurrence: None)
  Receive Date: 20090325
  Receipt Date: 20090318
  Transmission Date: 20090719
  Serious: Yes (Hospitalization, Other)
  Sender: FDA-Public Use
  Company Number: US-ASTRAZENECA-2009UW05852

PATIENT
  Age: 78 Year
  Sex: Female
  Weight: 61.2 kg

DRUGS (9)
  1. NEXIUM [Suspect]
     Indication: GASTROOESOPHAGEAL REFLUX DISEASE
     Route: 048
     Dates: start: 19970101
  2. FLEXERIL [Concomitant]
     Indication: FIBROMYALGIA
     Route: 048
  3. TIMOLOL MALEATE [Concomitant]
     Route: 047
  4. LEXAPRO [Concomitant]
     Route: 048
  5. WARFARIN SODIUM [Concomitant]
     Indication: CEREBROVASCULAR ACCIDENT
     Route: 048
  6. BENICAR HCT [Concomitant]
     Route: 048
  7. VALTREX [Concomitant]
     Route: 048
  8. ASPIRIN [Concomitant]
     Route: 048
  9. VITAMINS [Concomitant]
     Route: 048

REACTIONS (3)
  - AMNESIA [None]
  - CEREBROVASCULAR ACCIDENT [None]
  - SPEECH DISORDER [None]
